FAERS Safety Report 5741838-8 (Version None)
Quarter: 2008Q2

REPORT INFORMATION
  Report Type: 
  Country: None (occurrence: None)
  Receive Date: 20080519
  Receipt Date: 20080307
  Transmission Date: 20081010
  Serious: No
  Sender: FDA-Public Use
  Company Number: US-BAYER-200816967NA

PATIENT
  Age: 43 Year
  Sex: Female
  Weight: 73 kg

DRUGS (3)
  1. MIRENA [Suspect]
     Indication: MENORRHAGIA
     Route: 015
     Dates: start: 20071106, end: 20080121
  2. PAXIL [Concomitant]
     Indication: DEPRESSION
     Dosage: TOTAL DAILY DOSE: 30 MG
     Route: 048
     Dates: start: 19970801
  3. LEVOXYL [Concomitant]
     Route: 048
     Dates: start: 20030601

REACTIONS (1)
  - INTRA-UTERINE CONTRACEPTIVE DEVICE EXPELLED [None]
